FAERS Safety Report 13009978 (Version 1)
Quarter: 2016Q4

REPORT INFORMATION
  Report Type: Spontaneous
  Country: US (occurrence: US)
  Receive Date: 20161208
  Receipt Date: 20161208
  Transmission Date: 20170207
  Serious: Yes (Death)
  Sender: FDA-Public Use
  Company Number: US-DEPOMED, INC.-US-2016DEP012921

PATIENT

DRUGS (1)
  1. LAZANDA [Suspect]
     Active Substance: FENTANYL CITRATE
     Indication: PAIN
     Dosage: 1 SPRAY IN 1 OR 2 NOSTRILS, EVERY 6 HOURS
     Route: 045
     Dates: start: 20160824

REACTIONS (1)
  - Death [Fatal]

NARRATIVE: CASE EVENT DATE: 20161104
